FAERS Safety Report 8481702-7 (Version None)
Quarter: 2012Q2

REPORT INFORMATION
  Report Type: 
  Country: None (occurrence: None)
  Receive Date: 20120402
  Receipt Date: 20110412
  Transmission Date: 20120825
  Serious: Yes (Hospitalization, Other)
  Sender: FDA-Public Use
  Company Number: PHHY2010US80961

PATIENT
  Age: 64 Year
  Sex: Male

DRUGS (5)
  1. STEROIDS NOS (NO INGREDIENTS/SUBSTANCES) [Concomitant]
  2. EXFORGE HCT [Suspect]
     Indication: HYPERTENSION
     Dosage: 10/320/25 MG, ORAL
     Route: 048
     Dates: start: 20101026
  3. BYSTOLIC [Concomitant]
  4. LIPITOR [Concomitant]
  5. ANTIHISTAMINICS (ANTIHISTAMINICS) [Concomitant]

REACTIONS (11)
  - BLOOD PRESSURE INCREASED [None]
  - DIZZINESS [None]
  - PRURITUS [None]
  - RASH MACULAR [None]
  - SWELLING FACE [None]
  - HYPERSENSITIVITY [None]
  - RASH [None]
  - ERYTHEMA [None]
  - FLUSHING [None]
  - PYREXIA [None]
  - SKIN WARM [None]
